FAERS Safety Report 5155079-9 (Version None)
Quarter: 2006Q4

REPORT INFORMATION
  Report Type: 
  Country: None (occurrence: None)
  Receive Date: 20061121
  Receipt Date: 20061117
  Transmission Date: 20070319
  Serious: Yes (Other)
  Sender: FDA-Public Use
  Company Number: S2006US20519

PATIENT
  Age: 50 Year
  Sex: Female

DRUGS (2)
  1. DYAZIDE [Suspect]
     Indication: DRUG USE FOR UNKNOWN INDICATION
     Route: 048
  2. ATENOLOL [Suspect]
     Indication: DRUG USE FOR UNKNOWN INDICATION
     Dosage: 50MG UNKNOWN
     Route: 048

REACTIONS (1)
  - SYSTEMIC LUPUS ERYTHEMATOSUS [None]
